FAERS Safety Report 9146620 (Version 2)
Quarter: 2013Q1

REPORT INFORMATION
  Report Type: Spontaneous
  Country: US (occurrence: US)
  Receive Date: 20130307
  Receipt Date: 20130313
  Transmission Date: 20140127
  Serious: No
  Sender: FDA-Public Use
  Company Number: US-009507513-1303USA000981

PATIENT
  Age: 17 Year
  Sex: Female
  Weight: 77.98 kg

DRUGS (3)
  1. IMPLANON [Suspect]
     Indication: CONTRACEPTION
     Dosage: 1 ROD,3 YEARS
     Route: 059
     Dates: start: 20130113
  2. DEPO-PROVERA [Suspect]
  3. ALBUTEROL SULFATE [Concomitant]

REACTIONS (3)
  - Headache [Unknown]
  - Anxiety [Unknown]
  - Drug administration error [Unknown]
